FAERS Safety Report 4951225-8 (Version None)
Quarter: 2006Q1

REPORT INFORMATION
  Report Type: 
  Country: None (occurrence: None)
  Receive Date: 20060316
  Receipt Date: 20060307
  Transmission Date: 20060701
  Serious: No
  Sender: FDA-Public Use
  Company Number: 2006-139564-NL

PATIENT
  Age: 33 Year
  Sex: Male

DRUGS (7)
  1. ROCURONIUM BROMIDE [Suspect]
     Indication: MUSCLE RELAXANT THERAPY
     Dates: start: 20060302, end: 20060302
  2. FENTANYL [Concomitant]
  3. THIOPENTAL SODIUM [Concomitant]
  4. DROPERIDOL [Concomitant]
  5. CEFAZOLIN [Concomitant]
  6. DEXAMETHASONE TAB [Concomitant]
  7. PROPOFOL [Concomitant]

REACTIONS (1)
  - DRUG INEFFECTIVE [None]
